FAERS Safety Report 16399569 (Version 1)
Quarter: 2019Q2

REPORT INFORMATION
  Report Type: Spontaneous
  Country: US (occurrence: US)
  Receive Date: 20190606
  Receipt Date: 20190606
  Transmission Date: 20190711
  Serious: No
  Sender: FDA-Public Use
  Company Number: US-BAUSCH-BL-2019-015665

PATIENT
  Sex: Male

DRUGS (6)
  1. HUMIRA [Suspect]
     Active Substance: ADALIMUMAB
     Dosage: 40 MG/0.8 ML, DAY 15
     Route: 058
     Dates: start: 20180810, end: 20180810
  2. UCERIS [Suspect]
     Active Substance: BUDESONIDE
     Indication: PRODUCT USED FOR UNKNOWN INDICATION
     Route: 065
     Dates: start: 201809
  3. HUMIRA [Suspect]
     Active Substance: ADALIMUMAB
     Dosage: 40 MG/0.8 ML, DAY 1
     Route: 058
     Dates: start: 20180726, end: 20180726
  4. HUMIRA [Suspect]
     Active Substance: ADALIMUMAB
     Dosage: 40 MG/0.8 ML, DAY 29
     Route: 058
     Dates: start: 20180824, end: 2018
  5. HUMIRA [Suspect]
     Active Substance: ADALIMUMAB
     Dosage: 40 MG/0.4 ML
     Route: 058
     Dates: start: 20181024
  6. HUMIRA [Suspect]
     Active Substance: ADALIMUMAB
     Indication: CROHN^S DISEASE
     Dosage: 40 MG/0.8 ML
     Route: 058
     Dates: start: 2016

REACTIONS (10)
  - Sinus disorder [Unknown]
  - Abdominal adhesions [Recovering/Resolving]
  - Nasopharyngitis [Unknown]
  - Nasal congestion [Unknown]
  - Diarrhoea [Recovering/Resolving]
  - Postoperative adhesion [Unknown]
  - Fatigue [Recovering/Resolving]
  - Ill-defined disorder [Not Recovered/Not Resolved]
  - Abdominal pain [Recovered/Resolved]
  - Asthenia [Recovering/Resolving]
